FAERS Safety Report 4272915-9 (Version None)
Quarter: 2004Q1

REPORT INFORMATION
  Report Type: 
  Country: None (occurrence: None)
  Receive Date: 20040114
  Receipt Date: 20040102
  Transmission Date: 20041129
  Serious: Yes (Death)
  Sender: FDA-Public Use
  Company Number: AT-JNJFOC-20031104222

PATIENT
  Age: 82 Year
  Sex: Female

DRUGS (14)
  1. HALDOL [Suspect]
     Indication: DRUG USE FOR UNKNOWN INDICATION
     Dosage: 10 MG, IN 1 DAY
     Dates: start: 20030723, end: 20030727
  2. VASERETIC [Suspect]
     Indication: DRUG USE FOR UNKNOWN INDICATION
     Dosage: LONG TERM
     Dates: end: 20030727
  3. SEROQUEL [Suspect]
     Indication: DRUG USE FOR UNKNOWN INDICATION
     Dosage: SEE IMAGE
     Dates: start: 20030724, end: 20030724
  4. SEROQUEL [Suspect]
     Indication: DRUG USE FOR UNKNOWN INDICATION
     Dosage: SEE IMAGE
     Dates: start: 20030725, end: 20030725
  5. SEROQUEL [Suspect]
     Indication: DRUG USE FOR UNKNOWN INDICATION
     Dosage: SEE IMAGE
     Dates: start: 20030726, end: 20030727
  6. ISOPTIN [Concomitant]
  7. CALCIUM CARBONATE (CALCIUM CARBONATE) [Concomitant]
  8. FOSAMAX [Concomitant]
  9. TRAZODONE HCL [Concomitant]
  10. KCL TAB [Concomitant]
  11. PANTOLOC (PANTOPRAZOLE) [Concomitant]
  12. GEWACALM (DIAZEPAM) [Concomitant]
  13. NACL (SODIUM CHLORIDE) [Concomitant]
  14. AKINETON [Concomitant]

REACTIONS (32)
  - ADRENAL DISORDER [None]
  - ANAEMIA [None]
  - ARTERIOSCLEROSIS [None]
  - ATROPHY [None]
  - BRAIN OEDEMA [None]
  - CARDIAC ARREST [None]
  - CARDIOMEGALY [None]
  - CONTUSION [None]
  - CORONARY ARTERY DISEASE [None]
  - DEHYDRATION [None]
  - DEPRESSION [None]
  - DYSPNOEA [None]
  - EMPHYSEMA [None]
  - FALL [None]
  - FIBROSIS [None]
  - GASTRIC ADENOMA [None]
  - HYDROCEPHALUS [None]
  - HYPOKALAEMIA [None]
  - HYPONATRAEMIA [None]
  - LIPOMATOSIS [None]
  - MYOCARDIAL FIBROSIS [None]
  - NERVOUS SYSTEM DISORDER [None]
  - OEDEMA [None]
  - PANCREATIC DISORDER [None]
  - PERIRENAL HAEMATOMA [None]
  - PHLEBOTHROMBOSIS [None]
  - PSYCHOMOTOR AGITATION [None]
  - PULMONARY CONGESTION [None]
  - PULMONARY EMBOLISM [None]
  - PULMONARY INFARCTION [None]
  - RENAL ARTERY ATHEROSCLEROSIS [None]
  - SPLENIC NEOPLASM MALIGNANCY UNSPECIFIED [None]
